FAERS Safety Report 13957537 (Version 8)
Quarter: 2019Q3

REPORT INFORMATION
  Report Type: Report from Study
  Country: CA (occurrence: CA)
  Receive Date: 20170912
  Receipt Date: 20190923
  Transmission Date: 20191004
  Serious: Yes (Other)
  Sender: FDA-Public Use
  Company Number: CA-BRISTOL-MYERS SQUIBB COMPANY-BMS-2017-053679

PATIENT
  Age: 59 Year
  Sex: Female

DRUGS (1)
  1. ABATACEPT [Suspect]
     Active Substance: ABATACEPT
     Indication: RHEUMATOID ARTHRITIS
     Dosage: 750 MILLIGRAM, Q4WK
     Route: 042
     Dates: start: 20110620

REACTIONS (12)
  - Vitreous disorder [Recovering/Resolving]
  - Malaise [Unknown]
  - Infection [Unknown]
  - Mastitis [Unknown]
  - Vision blurred [Unknown]
  - Ocular hyperaemia [Unknown]
  - Breast disorder [Unknown]
  - Cough [Unknown]
  - Oral herpes [Unknown]
  - Hordeolum [Unknown]
  - Bronchitis [Unknown]
  - Nasopharyngitis [Recovered/Resolved]

NARRATIVE: CASE EVENT DATE: 20170711
